FAERS Safety Report 10404481 (Version 1)
Quarter: 2014Q1

REPORT INFORMATION
  Report Type: Spontaneous
  Country: US (occurrence: None)
  Receive Date: 20140306
  Receipt Date: 20140306
  Transmission Date: 20141002
  Serious: Yes (Other)
  Sender: FDA-Public Use
  Company Number: 163-21880-12031779

PATIENT
  Age: 80 Year
  Sex: Male
  Weight: 75.75 kg

DRUGS (16)
  1. REVLIMID (LENALIDOMIDE) (25 MILLIGRAM, CAPSULES) [Suspect]
     Indication: PLASMA CELL MYELOMA
     Dosage: 25 MG, 21 IN 21 D, PO
     Route: 048
     Dates: start: 20120223
  2. TAMSULOSIN (TAMSULOSIN) [Concomitant]
  3. FINASTERIDE (FINASTERIDE) [Concomitant]
  4. AMLODIPINE (AMLODIPINE) [Concomitant]
  5. ASPIRIN (ACETYLSALICYLIC ACID) [Concomitant]
  6. NEXIUM (ESOMEPRAZOLE) [Concomitant]
  7. SENNA (SENNA) [Concomitant]
  8. COLACE (DOCUSATE SODIUM) [Concomitant]
  9. PRANDIN (DEFLAZACORT) [Concomitant]
  10. ONDANSETRON (ONDANSETRON) [Concomitant]
  11. DOCUSATE (DOCUSATE) [Concomitant]
  12. ESOMEPRAZOLE (ESOMEPRAZOLE) [Concomitant]
  13. ACARBOSE (ACARBOSE) [Concomitant]
  14. SIMVASTATIN (SIMVASTATIN) [Concomitant]
  15. FENTANYL (FENTANYL) (POULTICE OR PATCH) [Concomitant]
  16. DEXAMETHASONE (DEXAMETHASONE) [Concomitant]

REACTIONS (6)
  - Constipation [None]
  - Adverse drug reaction [None]
  - Fatigue [None]
  - Hypersomnia [None]
  - Anaemia [None]
  - Rash [None]
